FAERS Safety Report 7418879-8 (Version None)
Quarter: 2011Q2

REPORT INFORMATION
  Report Type: 
  Country: None (occurrence: None)
  Receive Date: 20110415
  Receipt Date: 20110411
  Transmission Date: 20111010
  Serious: Yes (Death)
  Sender: FDA-Public Use
  Company Number: US-US-EMD SERONO, INC.-7012505

PATIENT
  Sex: Female

DRUGS (4)
  1. REBIF [Suspect]
     Indication: MULTIPLE SCLEROSIS
     Route: 058
     Dates: start: 20100219, end: 20100726
  2. AMPYRA [Concomitant]
  3. UNSPECIFIED ANTIDEPRESSANT [Concomitant]
  4. PROVIGIL [Concomitant]
     Indication: FATIGUE

REACTIONS (2)
  - MULTIPLE SCLEROSIS RELAPSE [None]
  - HEAT STROKE [None]
